FAERS Safety Report 10018056 (Version 1)
Quarter: 2014Q1

REPORT INFORMATION
  Report Type: Spontaneous
  Country: US (occurrence: US)
  Receive Date: 20140318
  Receipt Date: 20140318
  Transmission Date: 20141002
  Serious: Yes (Hospitalization)
  Sender: FDA-Public Use
  Company Number: US-JNJFOC-20140306536

PATIENT
  Age: 54 Year
  Sex: Male
  Weight: 90.27 kg

DRUGS (3)
  1. XARELTO [Suspect]
     Indication: KNEE ARTHROPLASTY
     Route: 048
     Dates: start: 20130917, end: 20130922
  2. XARELTO [Suspect]
     Indication: THROMBOSIS PROPHYLAXIS
     Route: 048
     Dates: start: 20130917, end: 20130922
  3. VICODIN [Concomitant]
     Indication: PAIN
     Dosage: 2 TABLETS ??Q4 HOUR AS NECESSARY
     Route: 048

REACTIONS (2)
  - Ecchymosis [Unknown]
  - Local swelling [Unknown]
